FAERS Safety Report 9050522 (Version 1)
Quarter: 2013Q1

REPORT INFORMATION
  Report Type: Spontaneous
  Country: GB (occurrence: GB)
  Receive Date: 20130205
  Receipt Date: 20130205
  Transmission Date: 20140127
  Serious: Yes (Other)
  Sender: FDA-Public Use
  Company Number: PHHY2013GB009135

PATIENT
  Age: 70 Year
  Sex: Female

DRUGS (6)
  1. SIMVASTATIN [Suspect]
     Indication: HYPERCHOLESTEROLAEMIA
     Dosage: 40 MG, QD AT NIGHT.
     Route: 048
     Dates: start: 20130116, end: 20130117
  2. CLEXANE [Concomitant]
     Indication: THROMBOSIS PROPHYLAXIS
     Dosage: 40 MG
     Route: 058
     Dates: start: 20130109
  3. PARACETAMOL [Concomitant]
     Indication: PAIN
     Dosage: 1 G
     Route: 048
     Dates: start: 20130109
  4. ASPIRIN [Concomitant]
     Dosage: 75 MG
     Route: 048
  5. BENDROFLUMETHIAZIDE [Concomitant]
     Indication: HYPERTENSION
     Dosage: 2.5 MG
     Route: 048
  6. AMOXICILLIN [Concomitant]
     Indication: LOWER RESPIRATORY TRACT INFECTION
     Dosage: 500 MG, TID
     Route: 048
     Dates: start: 20130113

REACTIONS (2)
  - Skin exfoliation [Recovering/Resolving]
  - Rash [Recovering/Resolving]
